FAERS Safety Report 8496301-0 (Version None)
Quarter: 2012Q2

REPORT INFORMATION
  Report Type: 
  Country: None (occurrence: None)
  Receive Date: 20120405
  Receipt Date: 20120216
  Transmission Date: 20120825
  Serious: Yes (Other)
  Sender: FDA-Public Use
  Company Number: PHEH2012US003978

PATIENT
  Age: 56 Year
  Sex: Female

DRUGS (7)
  1. DIOVAN HCT [Suspect]
     Indication: BLOOD PRESSURE
     Dosage: 1 DF, QD, ORAL
     Route: 048
  2. BENICAR [Suspect]
     Indication: BLOOD PRESSURE
     Dosage: ONCE DAILY, ORAL
     Route: 048
  3. LISINOPRIL [Suspect]
     Indication: BLOOD PRESSURE
     Dosage: QD, ORAL
     Route: 048
  4. CODEINE SULFATE [Concomitant]
  5. GLIPIZIDE [Concomitant]
  6. HYDROCHLOROTHIAZIDE [Suspect]
     Dosage: 75 MG, QD, ORAL
     Route: 048
  7. LOTREL [Suspect]
     Indication: BLOOD PRESSURE
     Dosage: QD, ORAL
     Route: 048

REACTIONS (12)
  - HEADACHE [None]
  - COUGH [None]
  - FLUSHING [None]
  - BLOOD PRESSURE FLUCTUATION [None]
  - HYPOAESTHESIA [None]
  - CHEST DISCOMFORT [None]
  - DRUG INEFFECTIVE [None]
  - HALLUCINATION [None]
  - CHEST PAIN [None]
  - PALPITATIONS [None]
  - MALAISE [None]
  - BLOOD GLUCOSE INCREASED [None]
